FAERS Safety Report 6437053-5 (Version None)
Quarter: 2009Q4

REPORT INFORMATION
  Report Type: 
  Country: None (occurrence: None)
  Receive Date: 20091112
  Receipt Date: 20091103
  Transmission Date: 20100525
  Serious: Yes (Other)
  Sender: FDA-Public Use
  Company Number: US-JNJFOC-20091101948

PATIENT
  Age: 40 Year
  Sex: Male

DRUGS (3)
  1. INVEGA [Suspect]
     Indication: BIPOLAR DISORDER
     Route: 048
  2. AMBIEN [Concomitant]
     Indication: INSOMNIA
  3. KLONOPIN [Concomitant]
     Indication: ANXIETY

REACTIONS (1)
  - WEIGHT INCREASED [None]
